FAERS Safety Report 6318569-9 (Version None)
Quarter: 2009Q3

REPORT INFORMATION
  Report Type: 
  Country: None (occurrence: None)
  Receive Date: 20090821
  Receipt Date: 20090817
  Transmission Date: 20100115
  Serious: Yes (Life-Threatening, Hospitalization, Other)
  Sender: FDA-Public Use
  Company Number: PHHY2009JP29402

PATIENT
  Age: 3 Year
  Sex: Female

DRUGS (5)
  1. NEORAL [Suspect]
     Indication: NEPHROTIC SYNDROME
     Dosage: 6 MG/KG DAILY
     Route: 048
     Dates: start: 20080318, end: 20080402
  2. STEROIDS NOS [Concomitant]
     Indication: NEPHROTIC SYNDROME
     Dosage: 60 MG/DAY
  3. CELLCEPT [Concomitant]
     Indication: NEPHROTIC SYNDROME
     Dosage: 1500 MG
     Route: 048
     Dates: start: 20080412, end: 20080418
  4. PREDONINE [Concomitant]
     Indication: NEPHROTIC SYNDROME
     Dosage: 60 MG DAILY
     Route: 048
     Dates: start: 20080318
  5. SOLU-MEDROL [Concomitant]
     Dosage: 500 MG
     Route: 042
     Dates: start: 20080401, end: 20080901

REACTIONS (14)
  - DEPRESSED LEVEL OF CONSCIOUSNESS [None]
  - FOCAL SEGMENTAL GLOMERULOSCLEROSIS [None]
  - GLOMERULOSCLEROSIS [None]
  - HAEMOLYTIC ANAEMIA [None]
  - HYPERTENSION [None]
  - INDURATION [None]
  - NEPHRECTOMY [None]
  - PANNICULITIS [None]
  - PERITONEAL ADHESIONS [None]
  - PYREXIA [None]
  - REVERSIBLE POSTERIOR LEUKOENCEPHALOPATHY SYNDROME [None]
  - SEPSIS [None]
  - THROMBOCYTOPENIA [None]
  - THROMBOTIC MICROANGIOPATHY [None]
